FAERS Safety Report 6822167-8 (Version None)
Quarter: 2010Q3

REPORT INFORMATION
  Report Type: 
  Country: None (occurrence: None)
  Receive Date: 20100707
  Receipt Date: 20100707
  Transmission Date: 20110219
  Serious: Yes (Other)
  Sender: FDA-Public Use
  Company Number: None

PATIENT
  Age: 33 Year
  Sex: Female
  Weight: 47.6277 kg

DRUGS (1)
  1. LEVAQUIN [Suspect]
     Indication: SINUSITIS
     Dosage: 1 TABLET DAILY PO
     Route: 048
     Dates: start: 20100428, end: 20100502

REACTIONS (7)
  - DECREASED APPETITE [None]
  - FEAR [None]
  - INSOMNIA [None]
  - NAUSEA [None]
  - NERVOUSNESS [None]
  - PAIN IN EXTREMITY [None]
  - TENDON INJURY [None]
